FAERS Safety Report 7807977-2 (Version None)
Quarter: 2011Q4

REPORT INFORMATION
  Report Type: 
  Country: None (occurrence: None)
  Receive Date: 20111011
  Receipt Date: 20111011
  Transmission Date: 20120403
  Serious: No
  Sender: FDA-Public Use
  Company Number: None

PATIENT
  Sex: Female
  Weight: 79.378 kg

DRUGS (4)
  1. VYTORIN [Suspect]
     Indication: BLOOD CHOLESTEROL INCREASED
     Dosage: 1 TABLET
     Route: 048
     Dates: start: 20070328, end: 20111010
  2. FLECAINIDE ACETATE [Concomitant]
     Route: 048
  3. CARDIZEM [Concomitant]
  4. WARFARIN SODIUM [Concomitant]
     Indication: ATRIAL FIBRILLATION
     Dosage: 1 TABLET FOR 5 DAYS,1/2 FOR 2
     Route: 048
     Dates: start: 20061001, end: 20111010

REACTIONS (2)
  - RENAL INJURY [None]
  - RENAL DISORDER [None]
